FAERS Safety Report 16345910 (Version 5)
Quarter: 2020Q1

REPORT INFORMATION
  Report Type: Report from Study
  Country: CA (occurrence: CA)
  Receive Date: 20190523
  Receipt Date: 20200226
  Transmission Date: 20200409
  Serious: Yes (Life-Threatening, Other)
  Sender: FDA-Public Use
  Company Number: CA-GLAXOSMITHKLINE-CA2019GSK088243

PATIENT
  Sex: Female

DRUGS (1)
  1. MEPOLIZUMAB [Suspect]
     Active Substance: MEPOLIZUMAB
     Indication: ASTHMA
     Dosage: 100 MG, Z, MONTHLY
     Route: 042
     Dates: start: 20180515

REACTIONS (6)
  - Metastases to central nervous system [Unknown]
  - Pleural effusion [Unknown]
  - Small cell lung cancer extensive stage [Unknown]
  - Neoplasm malignant [Unknown]
  - Hepatic cancer [Unknown]
  - Lung neoplasm malignant [Unknown]
